FAERS Safety Report 7300890-9 (Version None)
Quarter: 2011Q1

REPORT INFORMATION
  Report Type: 
  Country: None (occurrence: None)
  Receive Date: 20110103
  Receipt Date: 20091215
  Transmission Date: 20110831
  Serious: Yes (Hospitalization)
  Sender: FDA-Public Use
  Company Number: US-003843

PATIENT
  Age: 74 Year
  Sex: Female

DRUGS (8)
  1. MULTIHANCE [Suspect]
     Indication: BREAST CALCIFICATIONS
     Dosage: 14.3 ML ONCE INTRAVENOUS (NOT OTHERWISE SPECIFIED)
     Route: 042
     Dates: start: 20091204, end: 20091204
  2. MULTIHANCE [Suspect]
     Indication: NUCLEAR MAGNETIC RESONANCE IMAGING
     Dosage: 14.3 ML ONCE INTRAVENOUS (NOT OTHERWISE SPECIFIED)
     Route: 042
     Dates: start: 20091204, end: 20091204
  3. FLUDROCORTISONE ACETATE [Concomitant]
  4. LASIX [Concomitant]
  5. LEVOTHYROXINE SODIUM [Concomitant]
  6. ZOCOR [Concomitant]
  7. ATARAX [Concomitant]
  8. TAMOXIFEN CITRATE [Concomitant]

REACTIONS (1)
  - ANAPHYLACTIC REACTION [None]
